FAERS Safety Report 19861352 (Version 1)
Quarter: 2021Q3

REPORT INFORMATION
  Report Type: Spontaneous
  Country: US (occurrence: US)
  Receive Date: 20210921
  Receipt Date: 20210921
  Transmission Date: 20211014
  Serious: No
  Sender: FDA-Public Use
  Company Number: None

PATIENT
  Age: 25 Year
  Sex: Male
  Weight: 84.6 kg

DRUGS (4)
  1. REGEN?COV [Suspect]
     Active Substance: CASIRIVIMAB\IMDEVIMAB
     Indication: COVID-19
     Route: 058
     Dates: start: 20210915, end: 20210915
  2. ASPIRIN. [Concomitant]
     Active Substance: ASPIRIN
  3. MUCINEX [Concomitant]
     Active Substance: GUAIFENESIN
  4. ZINC. [Concomitant]
     Active Substance: ZINC

REACTIONS (1)
  - Urticaria [None]

NARRATIVE: CASE EVENT DATE: 20210916
